FAERS Safety Report 11117030 (Version 3)
Quarter: 2015Q2

REPORT INFORMATION
  Report Type: Spontaneous
  Country: US (occurrence: US)
  Receive Date: 20150515
  Receipt Date: 20150519
  Transmission Date: 20150821
  Serious: No
  Sender: FDA-Public Use
  Company Number: US-PFIZER INC-2015155860

PATIENT
  Age: 48 Year
  Sex: Male

DRUGS (1)
  1. XALKORI [Suspect]
     Active Substance: CRIZOTINIB
     Indication: LUNG CARCINOMA CELL TYPE UNSPECIFIED RECURRENT
     Dosage: 500 MG, 2X/DAY
     Route: 048
     Dates: start: 20150225

REACTIONS (2)
  - Disease progression [Unknown]
  - Lung carcinoma cell type unspecified recurrent [Unknown]
